FAERS Safety Report 6607831-8 (Version None)
Quarter: 2010Q1

REPORT INFORMATION
  Report Type: 
  Country: None (occurrence: None)
  Receive Date: 20100212
  Receipt Date: 20091110
  Transmission Date: 20100710
  Serious: No
  Sender: FDA-Public Use
  Company Number: 1000010049

PATIENT
  Sex: 0

DRUGS (3)
  1. SAVELLA [Suspect]
     Dosage: SEE IMAGE
     Route: 048
     Dates: start: 20090101, end: 20090101
  2. SAVELLA [Suspect]
     Dosage: SEE IMAGE
     Route: 048
     Dates: start: 20090101, end: 20090101
  3. SAVELLA [Suspect]
     Dosage: SEE IMAGE
     Route: 048
     Dates: start: 20090101

REACTIONS (1)
  - GASTROINTESTINAL DISORDER [None]
